FAERS Safety Report 9909804 (Version 1)
Quarter: 2014Q1

REPORT INFORMATION
  Report Type: Spontaneous
  Country: US (occurrence: None)
  Receive Date: 20140212
  Receipt Date: 20140212
  Transmission Date: 20141002
  Serious: Yes (Death)
  Sender: FDA-Public Use
  Company Number: 2014020099

PATIENT
  Age: 41 Year
  Sex: 0

DRUGS (5)
  1. CARISOPRODOL [Suspect]
  2. HYDROMORPHONE [Suspect]
  3. ALPRAZOLAM [Suspect]
  4. ACETAMINOPHEN/OXYCODONE [Suspect]
  5. BENZODIAZEPINE [Suspect]

REACTIONS (3)
  - Completed suicide [None]
  - Cardiac arrest [None]
  - Respiratory arrest [None]
